FAERS Safety Report 22035432 (Version 1)
Quarter: 2023Q1

REPORT INFORMATION
  Report Type: Spontaneous
  Country: US (occurrence: US)
  Receive Date: 20230224
  Receipt Date: 20230224
  Transmission Date: 20230418
  Serious: Yes (Other)
  Sender: FDA-Public Use
  Company Number: US-002147023-NVSC2023US039846

PATIENT
  Sex: Male

DRUGS (1)
  1. KYMRIAH [Suspect]
     Active Substance: TISAGENLECLEUCEL
     Indication: Acute lymphocytic leukaemia
     Dosage: 3.2X10E6 CAR POSITIVE VIABLE T-CELLS PER KG BODY WEIGHT
     Route: 042
     Dates: start: 202211

REACTIONS (5)
  - Acute lymphocytic leukaemia recurrent [Unknown]
  - Central nervous system leukaemia [Unknown]
  - White blood cell disorder [Unknown]
  - Cytogenetic abnormality [Unknown]
  - Minimal residual disease [Unknown]

NARRATIVE: CASE EVENT DATE: 20221201
